FAERS Safety Report 8012952 (Version 3)
Quarter: 2012Q4

REPORT INFORMATION
  Report Type: Report from Study
  Country: US (occurrence: US)
  Receive Date: 20110628
  Receipt Date: 20121205
  Transmission Date: 20130627
  Serious: Yes (Death, Hospitalization, Other)
  Sender: FDA-Public Use
  Company Number: US-ROCHE-785436

PATIENT
  Age: 56 Year
  Sex: Female
  Weight: 66.4 kg

DRUGS (1)
  1. CAPECITABINE [Suspect]
     Indication: BREAST CANCER METASTATIC
     Route: 048
     Dates: start: 201103, end: 20110516

REACTIONS (4)
  - Dehydration [Unknown]
  - Hypokalaemia [Unknown]
  - Metastases to liver [Unknown]
  - Death [Fatal]
